FAERS Safety Report 9783245 (Version 1)
Quarter: 2013Q4

REPORT INFORMATION
  Report Type: Spontaneous
  Country: IT (occurrence: IT)
  Receive Date: 20131226
  Receipt Date: 20131226
  Transmission Date: 20140711
  Serious: Yes (Hospitalization)
  Sender: FDA-Public Use
  Company Number: IT-PFIZER INC-2013367359

PATIENT
  Age: 30 Year
  Sex: Female

DRUGS (2)
  1. ZOLOFT [Suspect]
     Dosage: 400 MG, TOTAL
     Route: 048
     Dates: start: 20131215, end: 20131215
  2. XANAX [Suspect]
     Dosage: 10 ML, TOTAL
     Route: 048
     Dates: start: 20131215, end: 20131215

REACTIONS (3)
  - Overdose [Recovered/Resolved]
  - Suicide attempt [Recovered/Resolved]
  - Sopor [Recovered/Resolved]
